FAERS Safety Report 11517597 (Version 3)
Quarter: 2016Q4

REPORT INFORMATION
  Report Type: Spontaneous
  Country: US (occurrence: US)
  Receive Date: 20150917
  Receipt Date: 20161222
  Transmission Date: 20170206
  Serious: No
  Sender: FDA-Public Use
  Company Number: US-ACTELION PHARMACEUTICALS US, INC.-A-NJ2015-123940

PATIENT
  Age: 41 Year
  Sex: Female

DRUGS (5)
  1. OPSUMIT [Suspect]
     Active Substance: MACITENTAN
     Indication: PRODUCT USED FOR UNKNOWN INDICATION
     Dosage: 10 MG, QD
     Route: 048
     Dates: start: 20140407
  2. REMODULIN [Concomitant]
     Active Substance: TREPROSTINIL
  3. PREDNISONE. [Concomitant]
     Active Substance: PREDNISONE
  4. SILDENAFIL. [Concomitant]
     Active Substance: SILDENAFIL
  5. XELJANZ [Concomitant]
     Active Substance: TOFACITINIB CITRATE

REACTIONS (11)
  - Peripheral swelling [Unknown]
  - Decreased appetite [Unknown]
  - Dyspnoea [Unknown]
  - Drug dose omission [Unknown]
  - Therapy non-responder [Unknown]
  - Diarrhoea [Unknown]
  - Vomiting [Unknown]
  - Malaise [Unknown]
  - Night sweats [Unknown]
  - Heart rate increased [Unknown]
  - Insomnia [Unknown]
